FAERS Safety Report 25247068 (Version 1)
Quarter: 2025Q2

REPORT INFORMATION
  Report Type: Spontaneous
  Country: US (occurrence: US)
  Receive Date: 20250428
  Receipt Date: 20250428
  Transmission Date: 20250717
  Serious: No
  Sender: ABBVIE
  Company Number: US-ABBVIE-6241905

PATIENT
  Age: 76 Year
  Sex: Female

DRUGS (1)
  1. RESTASIS [Suspect]
     Active Substance: CYCLOSPORINE
     Indication: Dry eye
     Route: 047
     Dates: start: 2015

REACTIONS (4)
  - Product after taste [Not Recovered/Not Resolved]
  - COVID-19 [Unknown]
  - Incorrect dose administered [Not Recovered/Not Resolved]
  - Product container issue [Not Recovered/Not Resolved]

NARRATIVE: CASE EVENT DATE: 20250401
